FAERS Safety Report 18743221 (Version 2)
Quarter: 2021Q1

REPORT INFORMATION
  Report Type: Spontaneous
  Country: US (occurrence: US)
  Receive Date: 20210115
  Receipt Date: 20210312
  Transmission Date: 20210419
  Serious: Yes (Other)
  Sender: FDA-Public Use
  Company Number: US-ALXN-A202100200

PATIENT
  Age: 2 Year
  Sex: Male

DRUGS (1)
  1. SOLIRIS [Suspect]
     Active Substance: ECULIZUMAB
     Indication: PRODUCT USED FOR UNKNOWN INDICATION
     Dosage: UNK
     Route: 065

REACTIONS (6)
  - Enterococcal bacteraemia [Unknown]
  - Graft versus host disease [Unknown]
  - Pericardial effusion [Unknown]
  - Renal tubular dysfunction [Recovering/Resolving]
  - Tubulointerstitial nephritis [Recovering/Resolving]
  - Eosinophilia [Recovered/Resolved]
